FAERS Safety Report 7170687-1 (Version None)
Quarter: 2010Q4

REPORT INFORMATION
  Report Type: 
  Country: None (occurrence: None)
  Receive Date: 20101203
  Receipt Date: 20101122
  Transmission Date: 20110411
  Serious: Yes (Other)
  Sender: FDA-Public Use
  Company Number: LEO-2010-01050

PATIENT
  Age: 89 Year
  Sex: Male

DRUGS (2)
  1. INNOHEP [Suspect]
     Indication: ACUTE CORONARY SYNDROME
  2. ASPIRIN [Suspect]
     Indication: ACUTE CORONARY SYNDROME

REACTIONS (9)
  - ACTIVITIES OF DAILY LIVING IMPAIRED [None]
  - HAEMOGLOBIN DECREASED [None]
  - ILIAC ARTERY THROMBOSIS [None]
  - MUSCLE HAEMORRHAGE [None]
  - NERVE COMPRESSION [None]
  - PERIPHERAL ARTERY DISSECTION [None]
  - SCIATICA [None]
  - SCOLIOSIS [None]
  - SENSORY LOSS [None]
